FAERS Safety Report 8410446-2 (Version None)
Quarter: 2012Q2

REPORT INFORMATION
  Report Type: 
  Country: None (occurrence: None)
  Receive Date: 20120323
  Receipt Date: 20111201
  Transmission Date: 20120825
  Serious: Yes (Other)
  Sender: FDA-Public Use
  Company Number: 163-21880-11120557

PATIENT
  Age: 75 Year
  Sex: Female

DRUGS (2)
  1. REVLIMID [Suspect]
     Indication: MULTIPLE MYELOMA
     Dosage: 10 MG, 1 IN 1 D, PO ; 5MG-10MG, DAILY, PO
     Route: 048
     Dates: start: 20110807
  2. REVLIMID [Suspect]
     Indication: MULTIPLE MYELOMA
     Dosage: 10 MG, 1 IN 1 D, PO ; 5MG-10MG, DAILY, PO
     Route: 048
     Dates: start: 20090901

REACTIONS (2)
  - RASH [None]
  - FULL BLOOD COUNT DECREASED [None]
